FAERS Safety Report 9730401 (Version 2)
Quarter: 2013Q4

REPORT INFORMATION
  Report Type: Spontaneous
  Country: BR (occurrence: BR)
  Receive Date: 20131202
  Receipt Date: 20131202
  Transmission Date: 20140711
  Serious: Yes (Other)
  Sender: FDA-Public Use
  Company Number: BR-AMGEN-BRASP2013079539

PATIENT
  Age: 41 Year
  Sex: Female
  Weight: 90 kg

DRUGS (10)
  1. ENBREL [Suspect]
     Indication: RHEUMATOID ARTHRITIS
     Dosage: 50 MG, ONCE WEEKLY
     Route: 058
     Dates: start: 201310
  2. CAPTOPRIL [Concomitant]
     Dosage: 1 TABLET (40 MG), ONCE A DAY
     Route: 048
  3. PARACETAMOL [Concomitant]
     Dosage: UNK
  4. FOLIC ACID [Concomitant]
     Dosage: 1 TABLET (5 MG), ONCE A DAY
  5. ISONIAZIDE [Concomitant]
     Dosage: UNK
  6. AMATO [Concomitant]
     Dosage: UNK
  7. HYDROCHLOROTHIAZIDE [Concomitant]
     Dosage: 1 TABLET (25 MG), UNK
  8. SIMVASTATIN [Concomitant]
     Dosage: 1 TABLET (40 MG), UNK
  9. PREDNISONE [Concomitant]
     Dosage: 1 TABLET (10 MG), CYCLIC (EVERY 2 DAYS)
  10. METHOTREXATE [Concomitant]
     Dosage: 4 TABLETS OR CAPSULES OF 2.5MG (10 MG), WEEKLY (ON SUNDAYS)

REACTIONS (7)
  - Hemiplegia [Unknown]
  - Headache [Unknown]
  - Pain in extremity [Unknown]
  - Bone pain [Not Recovered/Not Resolved]
  - Bone disorder [Unknown]
  - Pain [Unknown]
  - Infection [Unknown]
